FAERS Safety Report 25742885 (Version 1)
Quarter: 2025Q3

REPORT INFORMATION
  Report Type: Spontaneous
  Country: US (occurrence: US)
  Receive Date: 20250830
  Receipt Date: 20250830
  Transmission Date: 20251020
  Serious: No
  Sender: NOVARTIS
  Company Number: US-SANDOZ-SDZ2025US061715

PATIENT

DRUGS (1)
  1. TRAVATAN Z [Suspect]
     Active Substance: TRAVOPROST
     Indication: Glaucoma
     Route: 065

REACTIONS (1)
  - Circumstance or information capable of leading to medication error [Unknown]
